FAERS Safety Report 5214435-0 (Version None)
Quarter: 2007Q1

REPORT INFORMATION
  Report Type: 
  Country: None (occurrence: None)
  Receive Date: 20070122
  Receipt Date: 20070122
  Transmission Date: 20070707
  Serious: Yes (Other)
  Sender: FDA-Public Use
  Company Number: None

PATIENT
  Age: 27 Year
  Sex: Female
  Weight: 100.6985 kg

DRUGS (1)
  1. TOPAMAX [Suspect]
     Indication: CONVULSION
     Dosage: 100 MG   TWICE   ORAL  (THERAPY DATES: MAY TO PRESENT)
     Route: 048

REACTIONS (5)
  - CONDITION AGGRAVATED [None]
  - CONVULSION [None]
  - LABORATORY TEST ABNORMAL [None]
  - METABOLIC ACIDOSIS [None]
  - RENAL IMPAIRMENT [None]
